FAERS Safety Report 14189766 (Version 2)
Quarter: 2017Q4

REPORT INFORMATION
  Report Type: Report from Study
  Country: US (occurrence: US)
  Receive Date: 20171115
  Receipt Date: 20171130
  Transmission Date: 20180321
  Serious: Yes (Hospitalization, Other)
  Sender: FDA-Public Use
  Company Number: US-BRISTOL-MYERS SQUIBB COMPANY-BMS-2017-101460

PATIENT
  Sex: Female
  Weight: 84.4 kg

DRUGS (2)
  1. NIVOLUMAB [Suspect]
     Active Substance: NIVOLUMAB
     Indication: OVARIAN CANCER
     Dosage: 3 MG/KG, Q3WK
     Route: 042
     Dates: start: 20170830, end: 20171003
  2. IPILIMUMAB [Suspect]
     Active Substance: IPILIMUMAB
     Indication: OVARIAN CANCER
     Dosage: 1 MG/KG, Q3WK
     Route: 042
     Dates: start: 20170830, end: 20171003

REACTIONS (6)
  - Sepsis [Recovered/Resolved]
  - Confusional state [Recovered/Resolved]
  - Dermatitis acneiform [Recovered/Resolved]
  - Hypotension [Recovered/Resolved]
  - Hyponatraemia [Recovered/Resolved]
  - Hypertension [Recovered/Resolved]

NARRATIVE: CASE EVENT DATE: 20171017
